FAERS Safety Report 11671367 (Version 2)
Quarter: 2015Q4

REPORT INFORMATION
  Report Type: Spontaneous
  Country: JP (occurrence: JP)
  Receive Date: 20151028
  Receipt Date: 20151113
  Transmission Date: 20160304
  Serious: Yes (Death)
  Sender: FDA-Public Use
  Company Number: JP-ROCHE-1650798

PATIENT
  Age: 66 Year
  Sex: Male
  Weight: 73 kg

DRUGS (8)
  1. 5-FU [Concomitant]
     Active Substance: FLUOROURACIL
     Indication: COLON CANCER
     Dosage: DOSAGE WAS UNCERTAIN.?COMPLETED TREATMENT CYCLE NUMBER: 19
     Route: 041
  2. DECADRON [Concomitant]
     Active Substance: DEXAMETHASONE
     Route: 065
     Dates: start: 20141110
  3. 5-FU [Concomitant]
     Active Substance: FLUOROURACIL
     Indication: COLON CANCER
     Dosage: DOSAGE WAS UNCERTAIN.
     Route: 040
     Dates: start: 20141110
  4. INSULIN [Concomitant]
     Active Substance: INSULIN NOS
     Indication: DIABETES MELLITUS
     Dosage: DOSAGE IS UNCERTAIN.
     Route: 065
  5. TOPOTECIN [Suspect]
     Active Substance: IRINOTECAN HYDROCHLORIDE
     Indication: COLON CANCER
     Dosage: COMPLETED TREATMENT CYCLE NUMBER: 19
     Route: 041
     Dates: start: 20141110
  6. AVASTIN [Suspect]
     Active Substance: BEVACIZUMAB
     Indication: COLON CANCER
     Dosage: DOSAGE WAS UNCERTAIN.?TREATMENT LINE: 2ND
     Route: 041
     Dates: start: 20141110
  7. AVASTIN [Suspect]
     Active Substance: BEVACIZUMAB
     Indication: COLON CANCER
     Dosage: COMPLETED 19TH CYCLE
     Route: 041
     Dates: start: 2015
  8. CALCIUM LEVOFOLINATE [Concomitant]
     Active Substance: LEVOLEUCOVORIN CALCIUM
     Indication: COLON CANCER
     Dosage: DOSAGE WAS UNCERTAIN.?COMPLETED TREATMENT CYCLE NUMBER: 19
     Route: 041
     Dates: start: 20141110

REACTIONS (5)
  - Multi-organ failure [Fatal]
  - Renal failure [Fatal]
  - Febrile neutropenia [Fatal]
  - Disseminated intravascular coagulation [Fatal]
  - Hepatic failure [Fatal]

NARRATIVE: CASE EVENT DATE: 20151015
